FAERS Safety Report 7282395-7 (Version None)
Quarter: 2011Q1

REPORT INFORMATION
  Report Type: 
  Country: None (occurrence: None)
  Receive Date: 20110125
  Receipt Date: 20110110
  Transmission Date: 20110831
  Serious: Yes (Death, Other)
  Sender: FDA-Public Use
  Company Number: 2011P1003872

PATIENT
  Age: 51 Year

DRUGS (1)
  1. FENTANYL-100 [Suspect]
     Dosage: 100 MCG HR, PO
     Route: 048

REACTIONS (10)
  - RESPIRATORY ARREST [None]
  - LOSS OF CONSCIOUSNESS [None]
  - BLOOD LACTIC ACID INCREASED [None]
  - SUICIDE ATTEMPT [None]
  - HYPOXIA [None]
  - HYPOXIC-ISCHAEMIC ENCEPHALOPATHY [None]
  - INCORRECT ROUTE OF DRUG ADMINISTRATION [None]
  - WRONG TECHNIQUE IN DRUG USAGE PROCESS [None]
  - TROPONIN INCREASED [None]
  - POISONING [None]
